FAERS Safety Report 5491766-0 (Version None)
Quarter: 2007Q4

REPORT INFORMATION
  Report Type: 
  Country: None (occurrence: None)
  Receive Date: 20071019
  Receipt Date: 20071019
  Transmission Date: 20080405
  Serious: No
  Sender: FDA-Public Use
  Company Number: None

PATIENT
  Age: 43 Year
  Sex: Female

DRUGS (3)
  1. CHLORPROMAZINE [Suspect]
  2. QUETIAPINE FUMARATE [Suspect]
  3. DIPHENHYDRAMINE HCL [Suspect]

REACTIONS (7)
  - ANTICHOLINERGIC SYNDROME [None]
  - BLOOD PRESSURE DECREASED [None]
  - BODY TEMPERATURE DECREASED [None]
  - DRUG TOXICITY [None]
  - ERYTHEMA [None]
  - SKIN WARM [None]
  - TONGUE DISORDER [None]
